FAERS Safety Report 24836700 (Version 2)
Quarter: 2025Q1

REPORT INFORMATION
  Report Type: Spontaneous
  Country: US (occurrence: US)
  Receive Date: 20250113
  Receipt Date: 20250115
  Transmission Date: 20250408
  Serious: Yes (Other)
  Sender: ABBVIE
  Company Number: US-ABBVIE-6077499

PATIENT
  Sex: Female

DRUGS (4)
  1. BOTOX COSMETIC [Suspect]
     Active Substance: ONABOTULINUMTOXINA
     Indication: Skin wrinkling
     Route: 065
     Dates: start: 2013, end: 2013
  2. BOTOX COSMETIC [Suspect]
     Active Substance: ONABOTULINUMTOXINA
     Indication: Skin wrinkling
     Route: 065
     Dates: start: 20241209, end: 20241209
  3. BOTOX COSMETIC [Suspect]
     Active Substance: ONABOTULINUMTOXINA
     Indication: Skin wrinkling
     Route: 065
  4. BOTOX COSMETIC [Suspect]
     Active Substance: ONABOTULINUMTOXINA
     Indication: Skin wrinkling
     Route: 065

REACTIONS (15)
  - Cerebrovascular accident [Unknown]
  - Malaise [Unknown]
  - Eye disorder [Unknown]
  - Eyelid ptosis [Unknown]
  - Unevaluable event [Unknown]
  - Lethargy [Unknown]
  - Muscular weakness [Unknown]
  - Toxicity to various agents [Unknown]
  - Swollen tongue [Unknown]
  - Dysphagia [Unknown]
  - Facial paresis [Unknown]
  - Dizziness [Unknown]
  - Pain in jaw [Unknown]
  - Dysarthria [Unknown]
  - Dysphonia [Unknown]
